FAERS Safety Report 22645752 (Version 1)
Quarter: 2023Q2

REPORT INFORMATION
  Report Type: Spontaneous
  Country: US (occurrence: None)
  Receive Date: 20230626
  Receipt Date: 20230626
  Transmission Date: 20230722
  Serious: Yes (Other)
  Sender: FDA-Public Use
  Company Number: None

PATIENT
  Age: 45 Year
  Sex: Male
  Weight: 85.5 kg

DRUGS (1)
  1. BENADRYL [Suspect]
     Active Substance: DIPHENHYDRAMINE HYDROCHLORIDE
     Indication: Dermatitis contact
     Dosage: OTHER QUANTITY : 1 OZ;?FREQUENCY : AS NEEDED;?
     Route: 061
     Dates: start: 20230624, end: 20230625

REACTIONS (5)
  - Erythema [None]
  - Urticaria [None]
  - Pruritus [None]
  - Drug hypersensitivity [None]
  - Dermatitis contact [None]

NARRATIVE: CASE EVENT DATE: 20230624
